FAERS Safety Report 6635207-6 (Version None)
Quarter: 2010Q1

REPORT INFORMATION
  Report Type: 
  Country: None (occurrence: None)
  Receive Date: 20100315
  Receipt Date: 20100303
  Transmission Date: 20100710
  Serious: Yes (Other)
  Sender: FDA-Public Use
  Company Number: US-PFIZER INC-2010028047

PATIENT
  Sex: Female

DRUGS (3)
  1. LYRICA [Suspect]
     Dosage: 25 MG, 4X/DAY
     Dates: start: 20100101, end: 20100129
  2. LYRICA [Suspect]
     Dosage: 50 MG, 2X/DAY
     Dates: start: 20100129
  3. LYRICA [Suspect]
     Dosage: 100 MG, 3X/DAY

REACTIONS (2)
  - INTESTINAL RESECTION [None]
  - MEDICATION RESIDUE [None]
